FAERS Safety Report 13628317 (Version 1)
Quarter: 2017Q2

REPORT INFORMATION
  Report Type: Spontaneous
  Country: HU (occurrence: HU)
  Receive Date: 20170608
  Receipt Date: 20170608
  Transmission Date: 20170830
  Serious: Yes (Other)
  Sender: FDA-Public Use
  Company Number: HU-PFIZER INC-2017245783

PATIENT
  Age: 80 Year
  Sex: Female

DRUGS (1)
  1. LYRICA [Suspect]
     Active Substance: PREGABALIN
     Indication: ARTHRALGIA
     Dosage: UNK
     Dates: start: 20170502

REACTIONS (9)
  - Confusional state [Unknown]
  - Product use in unapproved indication [Unknown]
  - Tremor [Unknown]
  - Diarrhoea [Unknown]
  - Parkinson^s disease [Unknown]
  - Sleep disorder [Unknown]
  - Illusion [Unknown]
  - Dysbacteriosis [Unknown]
  - Dizziness [Unknown]

NARRATIVE: CASE EVENT DATE: 20170502
